FAERS Safety Report 10618769 (Version 1)
Quarter: 2014Q4

REPORT INFORMATION
  Report Type: Spontaneous
  Country: US (occurrence: US)
  Receive Date: 20141202
  Receipt Date: 20141202
  Transmission Date: 20150529
  Serious: Yes (Hospitalization, Other)
  Sender: FDA-Public Use
  Company Number: US-SA-2014SA162930

PATIENT
  Age: 71 Year
  Sex: Female

DRUGS (2)
  1. SOLOSTAR [Concomitant]
     Active Substance: DEVICE
  2. LANTUS SOLOSTAR [Suspect]
     Active Substance: INSULIN GLARGINE
     Dosage: DOSE:60 UNIT(S)
     Route: 065

REACTIONS (4)
  - Bronchitis [Unknown]
  - Incorrect product storage [Unknown]
  - Pulmonary embolism [Unknown]
  - Hospitalisation [Unknown]

NARRATIVE: CASE EVENT DATE: 201304
